FAERS Safety Report 14871398 (Version 3)
Quarter: 2020Q2

REPORT INFORMATION
  Report Type: Spontaneous
  Country: ES (occurrence: ES)
  Receive Date: 20180509
  Receipt Date: 20200526
  Transmission Date: 20200713
  Serious: Yes (Hospitalization, Other)
  Sender: FDA-Public Use
  Company Number: ES-ABBVIE-18K-144-2349039-00

PATIENT
  Sex: Male

DRUGS (2)
  1. HUMIRA [Suspect]
     Active Substance: ADALIMUMAB
     Indication: CROHN^S DISEASE
     Route: 058
     Dates: start: 201709
  2. HUMIRA [Suspect]
     Active Substance: ADALIMUMAB
     Indication: INFLAMMATORY BOWEL DISEASE
     Route: 058
     Dates: start: 201811

REACTIONS (23)
  - Nervousness [Unknown]
  - Atrial fibrillation [Recovered/Resolved]
  - Anal abscess [Recovering/Resolving]
  - Anal abscess [Unknown]
  - Fatigue [Unknown]
  - Anxiety [Unknown]
  - Loss of consciousness [Recovered/Resolved]
  - Crohn^s disease [Unknown]
  - Drug ineffective [Unknown]
  - Arrhythmia [Unknown]
  - Abdominal pain [Unknown]
  - Myalgia [Unknown]
  - Discomfort [Unknown]
  - Large intestine perforation [Recovered/Resolved]
  - Anaemia [Recovered/Resolved]
  - Abdominal mass [Recovered/Resolved]
  - Fistula [Unknown]
  - Loss of consciousness [Recovered/Resolved]
  - Anal fistula [Recovering/Resolving]
  - Pain [Unknown]
  - Asthenia [Unknown]
  - Asthenia [Unknown]
  - Adverse drug reaction [Unknown]

NARRATIVE: CASE EVENT DATE: 201709
